FAERS Safety Report 5494294-1 (Version None)
Quarter: 2007Q4

REPORT INFORMATION
  Report Type: 
  Country: None (occurrence: None)
  Receive Date: 20071012
  Receipt Date: 20070906
  Transmission Date: 20080405
  Serious: Yes (Other)
  Sender: FDA-Public Use
  Company Number: US-2007-033540

PATIENT
  Age: 37 Year
  Sex: Female
  Weight: 57.6 kg

DRUGS (3)
  1. YAZ [Suspect]
     Indication: ACNE
     Dosage: 1 TAB(S), 1X/DAY, ORAL
     Route: 048
     Dates: start: 20070501, end: 20070821
  2. LEVOXYL [Concomitant]
  3. CYTOMEL [Concomitant]

REACTIONS (9)
  - ATRIAL SEPTAL DEFECT [None]
  - BLINDNESS [None]
  - CEREBROVASCULAR ACCIDENT [None]
  - DEPRESSION [None]
  - MIGRAINE [None]
  - PARAESTHESIA [None]
  - SINUSITIS [None]
  - SLEEP DISORDER [None]
  - VOMITING [None]
